FAERS Safety Report 8511005-3 (Version None)
Quarter: 2012Q3

REPORT INFORMATION
  Report Type: 
  Country: None (occurrence: None)
  Receive Date: 20120716
  Receipt Date: 20120710
  Transmission Date: 20120928
  Serious: Yes (Hospitalization)
  Sender: FDA-Public Use
  Company Number: US-BAYER-2012-031662

PATIENT
  Age: 27 Year
  Sex: Female
  Weight: 63.492 kg

DRUGS (8)
  1. TRIAMTERENE [Concomitant]
     Indication: OEDEMA
  2. YAZ [Suspect]
     Indication: ACNE
     Dosage: UNK
     Dates: start: 20030101, end: 20100101
  3. LYRICA [Concomitant]
     Indication: FIBROMYALGIA
     Dosage: UNK
     Dates: start: 20040101
  4. TRAMADOL HCL [Concomitant]
     Indication: PAIN
     Dosage: UNK
     Dates: start: 20040101
  5. TRIAMTERENE [Concomitant]
     Indication: VASCULITIS
     Dosage: UNK
     Dates: start: 20090101
  6. YASMIN [Suspect]
     Indication: ACNE
     Dosage: UNK
     Dates: start: 20030101, end: 20100101
  7. METOPROLOL TARTRATE [Concomitant]
     Indication: TACHYCARDIA
     Dosage: UNK
     Dates: start: 19950101
  8. MOTRIN [Concomitant]
     Indication: INFLAMMATION
     Dosage: UNK
     Dates: start: 20090101

REACTIONS (3)
  - GALLBLADDER DISORDER [None]
  - INJURY [None]
  - PAIN [None]
